FAERS Safety Report 8334700 (Version 4)
Quarter: 2012Q4

REPORT INFORMATION
  Report Type: 
  Country: BE (occurrence: BE)
  Receive Date: 20120112
  Receipt Date: 20121122
  Transmission Date: 20130627
  Serious: Yes (Hospitalization)
  Sender: FDA-Public Use
  Company Number: PHHY2012BE001543

PATIENT
  Age: 72 Year
  Sex: Female

DRUGS (1)
  1. SANDOSTATINE LAR [Suspect]
     Indication: PANCREATIC NEUROENDOCRINE TUMOUR
     Dosage: 30 mg, every 4 weeks (28 days)
     Route: 030
     Dates: start: 20090909

REACTIONS (4)
  - Cardiac disorder [Unknown]
  - Cardiac failure [Recovering/Resolving]
  - Peritoneal abscess [Recovered/Resolved]
  - Diarrhoea [Unknown]
